FAERS Safety Report 13746582 (Version 1)
Quarter: 2017Q3

REPORT INFORMATION
  Report Type: Report from Study
  Country: BR (occurrence: BR)
  Receive Date: 20170712
  Receipt Date: 20170712
  Transmission Date: 20171127
  Serious: Yes (Other)
  Sender: FDA-Public Use
  Company Number: PHHY2017BR034631

PATIENT
  Sex: Female
  Weight: 82 kg

DRUGS (4)
  1. GILENYA [Suspect]
     Active Substance: FINGOLIMOD HYDROCHLORIDE
     Indication: MULTIPLE SCLEROSIS
     Dosage: 0.5 MG, QD (1 CAPSULE A DAY AT 9:00 IN THE MORNING)
     Route: 048
     Dates: start: 20161208, end: 20170122
  2. GILENYA [Suspect]
     Active Substance: FINGOLIMOD HYDROCHLORIDE
     Dosage: 0.5 MG, QD
     Route: 048
     Dates: start: 2017
  3. FLUOXETINE [Concomitant]
     Active Substance: FLUOXETINE HYDROCHLORIDE
     Indication: DEPRESSION
     Dosage: 2 DF, QD
     Route: 048
  4. FENOBARBITAL [Concomitant]
     Active Substance: PHENOBARBITAL
     Indication: SEIZURE
     Dosage: 100 MG, UNK
     Route: 048

REACTIONS (10)
  - Hypoaesthesia [Not Recovered/Not Resolved]
  - Sensory loss [Unknown]
  - Rhinorrhoea [Not Recovered/Not Resolved]
  - Weight decreased [Not Recovered/Not Resolved]
  - Confusional state [Unknown]
  - Visual impairment [Not Recovered/Not Resolved]
  - Tooth abscess [Not Recovered/Not Resolved]
  - Paraesthesia [Not Recovered/Not Resolved]
  - Discomfort [Unknown]
  - Optic neuritis [Not Recovered/Not Resolved]
